FAERS Safety Report 8480021-2 (Version None)
Quarter: 2012Q2

REPORT INFORMATION
  Report Type: 
  Country: None (occurrence: None)
  Receive Date: 20120629
  Receipt Date: 20120620
  Transmission Date: 20120825
  Serious: Yes (Life-Threatening, Other)
  Sender: FDA-Public Use
  Company Number: FR-ROCHE-1026942

PATIENT
  Sex: Male
  Weight: 45 kg

DRUGS (6)
  1. RILMENIDINE [Concomitant]
     Route: 048
     Dates: start: 20090101
  2. MIRCERA [Suspect]
     Indication: PRODUCT USED FOR UNKNOWN INDICATION
     Dates: start: 20110817, end: 20110915
  3. ATENOLOL [Concomitant]
     Route: 048
     Dates: start: 19960101
  4. LERCANIDIPINE [Concomitant]
     Route: 048
     Dates: start: 20060101
  5. CLOPIDOGREL [Concomitant]
     Route: 048
     Dates: start: 20060101
  6. CALCIUM CARBONATE [Concomitant]
     Route: 048
     Dates: start: 20110708

REACTIONS (1)
  - CEREBROVASCULAR ACCIDENT [None]
